FAERS Safety Report 5426657-4 (Version None)
Quarter: 2007Q3

REPORT INFORMATION
  Report Type: 
  Country: None (occurrence: None)
  Receive Date: 20070731
  Receipt Date: 20070529
  Transmission Date: 20080115
  Serious: No
  Sender: FDA-Public Use
  Company Number: 2006PV012543

PATIENT
  Age: 43 Year
  Sex: Male
  Weight: 59 kg

DRUGS (6)
  1. EXENATIDE (EXENATIDE) PEN, DISPOSABLE [Suspect]
     Indication: TYPE 2 DIABETES MELLITUS
     Dosage: 5 UG, 2/D, SUBCUTANEOUS 10 UG, 2/D
     Route: 058
     Dates: start: 20060422, end: 20060501
  2. EXENATIDE (EXENATIDE) PEN, DISPOSABLE [Suspect]
     Indication: TYPE 2 DIABETES MELLITUS
     Dosage: 5 UG, 2/D, SUBCUTANEOUS 10 UG, 2/D
     Route: 058
     Dates: start: 20060501
  3. EXENATIDE (EXENATIDE) PEN, DISPOSABLE [Suspect]
  4. ACTOS [Concomitant]
  5. PRANDIN [Concomitant]
  6. NOVOLOG [Concomitant]

REACTIONS (3)
  - BLOOD GLUCOSE INCREASED [None]
  - DIZZINESS [None]
  - HYPERHIDROSIS [None]
